APPROVED DRUG PRODUCT: HABITROL
Active Ingredient: NICOTINE
Strength: 7MG/24HR
Dosage Form/Route: FILM, EXTENDED RELEASE;TRANSDERMAL
Application: N020076 | Product #004
Applicant: DR REDDYS LABORATORIES SA
Approved: Nov 12, 1999 | RLD: Yes | RS: No | Type: OTC